FAERS Safety Report 5245954-9 (Version None)
Quarter: 2007Q1

REPORT INFORMATION
  Report Type: 
  Country: None (occurrence: None)
  Receive Date: 20070220
  Receipt Date: 20061228
  Transmission Date: 20070707
  Serious: Yes (Hospitalization)
  Sender: FDA-Public Use
  Company Number: 230110M06FRA

PATIENT
  Age: 42 Year
  Sex: Male

DRUGS (1)
  1. REBIF [Suspect]
     Dosage: 18.8571 MG (44 MG, 3 IN 1 WEEKS) SUBCUTANEOUS
     Route: 058
     Dates: start: 20010101

REACTIONS (2)
  - INJECTION SITE ABSCESS [None]
  - INJECTION SITE INFECTION [None]
